FAERS Safety Report 10227048 (Version 2)
Quarter: 2014Q2

REPORT INFORMATION
  Report Type: Spontaneous
  Country: US (occurrence: None)
  Receive Date: 20140529
  Receipt Date: 20140613
  Transmission Date: 20141212
  Serious: Yes (Other)
  Sender: FDA-Public Use
  Company Number: WIL-013-14-US FU#2

PATIENT
  Age: 14 Year
  Sex: Male
  Weight: 49 kg

DRUGS (3)
  1. WILATE [Suspect]
     Indication: VON WILLEBRAND^S DISEASE
     Dosage: 870 IU (1X 1 / D)
     Route: 042
     Dates: start: 20140428, end: 20140428
  2. AMINOCAPROIC ACID [Concomitant]
  3. MELOXICAM [Concomitant]

REACTIONS (5)
  - Vomiting [None]
  - Nausea [None]
  - Throat tightness [None]
  - Flushing [None]
  - Infusion related reaction [None]
